FAERS Safety Report 10373536 (Version 3)
Quarter: 2015Q1

REPORT INFORMATION
  Report Type: Spontaneous
  Country: US (occurrence: US)
  Receive Date: 20140808
  Receipt Date: 20150206
  Transmission Date: 20150720
  Serious: No
  Sender: FDA-Public Use
  Company Number: US-GILEAD-2014-0111270

PATIENT
  Age: 61 Year
  Sex: Female

DRUGS (3)
  1. LETAIRIS [Suspect]
     Active Substance: AMBRISENTAN
     Indication: HIV INFECTION
  2. LETAIRIS [Suspect]
     Active Substance: AMBRISENTAN
     Indication: PULMONARY HYPERTENSION
     Dosage: 10 MG, QD
     Route: 065
     Dates: start: 20101129
  3. REVATIO [Concomitant]
     Active Substance: SILDENAFIL CITRATE
     Dosage: UNK

REACTIONS (3)
  - Dyspnoea exertional [Unknown]
  - Chest discomfort [Unknown]
  - Weight fluctuation [Unknown]
